FAERS Safety Report 17054961 (Version 2)
Quarter: 2019Q4

REPORT INFORMATION
  Report Type: Spontaneous
  Country: US (occurrence: US)
  Receive Date: 20191120
  Receipt Date: 20191224
  Transmission Date: 20200122
  Serious: No
  Sender: FDA-Public Use
  Company Number: US-SA-2019SA320201

PATIENT
  Age: 75 Year
  Sex: Male

DRUGS (8)
  1. CORTISONE [Concomitant]
     Active Substance: CORTISONE
  2. LISINOPRIL. [Concomitant]
     Active Substance: LISINOPRIL
  3. DUPIXENT [Suspect]
     Active Substance: DUPILUMAB
     Indication: ASTHMA
     Dosage: 300 MG, QOW
     Route: 058
     Dates: start: 20190701
  4. ATORVASTATIN [Concomitant]
     Active Substance: ATORVASTATIN
  5. EUCRISA [Concomitant]
     Active Substance: CRISABOROLE
  6. MOMETASONE [Concomitant]
     Active Substance: MOMETASONE
  7. BREO ELLIPTA [Concomitant]
     Active Substance: FLUTICASONE FUROATE\VILANTEROL TRIFENATATE
  8. MONTELUKAST [Concomitant]
     Active Substance: MONTELUKAST SODIUM

REACTIONS (2)
  - Eye disorder [Not Recovered/Not Resolved]
  - Eye irritation [Not Recovered/Not Resolved]
